FAERS Safety Report 23484568 (Version 2)
Quarter: 2024Q2

REPORT INFORMATION
  Report Type: Spontaneous
  Country: BG (occurrence: BG)
  Receive Date: 20240206
  Receipt Date: 20240401
  Transmission Date: 20240716
  Serious: Yes (Other)
  Sender: FDA-Public Use
  Company Number: None

PATIENT
  Age: 53 Year
  Sex: Female
  Weight: 54 kg

DRUGS (37)
  1. CAPECITABINE [Suspect]
     Active Substance: CAPECITABINE
     Indication: Breast cancer
     Dosage: 2000 MG,Q3W
     Route: 048
     Dates: start: 20190530, end: 20191125
  2. CAPECITABINE [Suspect]
     Active Substance: CAPECITABINE
     Indication: HER2 positive breast cancer
  3. DOCETAXEL [Suspect]
     Active Substance: DOCETAXEL\DOCETAXEL ANHYDROUS
     Indication: HER2 positive breast cancer
     Dosage: 75 MG/M2,Q3W (MOST DOSE PRIOR TO EVENT 19 DEC 2018)
     Route: 042
     Dates: start: 20170804, end: 201711
  4. HERCEPTIN [Suspect]
     Active Substance: TRASTUZUMAB
     Indication: HER2 positive breast cancer
     Dosage: 25 MG/M2, TIW
     Route: 042
     Dates: start: 20200218, end: 20201009
  5. HERCEPTIN [Suspect]
     Active Substance: TRASTUZUMAB
     Dosage: 6.000MG/KG TIW
     Route: 042
     Dates: start: 20170824, end: 20180808
  6. HERCEPTIN [Suspect]
     Active Substance: TRASTUZUMAB
     Dosage: 600.000MG TIW
     Route: 042
     Dates: start: 20181219, end: 20191111
  7. HERCEPTIN [Suspect]
     Active Substance: TRASTUZUMAB
     Dosage: 8.000MG/KG QD
     Route: 042
     Dates: start: 20170804, end: 20170804
  8. KADCYLA [Suspect]
     Active Substance: ADO-TRASTUZUMAB EMTANSINE
     Indication: HER2 positive breast cancer
     Dosage: 8 MG/KG, QD
     Route: 042
     Dates: start: 20170804, end: 20170804
  9. LAPATINIB [Suspect]
     Active Substance: LAPATINIB
     Indication: HER2 positive breast cancer
     Dosage: 1250 MG,QD
     Route: 048
     Dates: start: 20191125, end: 20191125
  10. VINORELBINE TARTRATE [Suspect]
     Active Substance: VINORELBINE TARTRATE
     Indication: Product used for unknown indication
     Dosage: 75 MG/M2, TIW
     Route: 042
     Dates: start: 20170804, end: 201711
  11. NOLVADEX [Suspect]
     Active Substance: TAMOXIFEN CITRATE
     Indication: HER2 positive breast cancer
     Dosage: 20 MG, QD
     Route: 048
     Dates: start: 201610, end: 201706
  12. PERJETA [Suspect]
     Active Substance: PERTUZUMAB
     Dosage: 420.000MG TIW
     Route: 042
     Dates: start: 20190404, end: 20190624
  13. PERJETA [Suspect]
     Active Substance: PERTUZUMAB
     Indication: HER2 positive breast cancer
     Dosage: 600 MG, Q3W
     Route: 042
     Dates: start: 20181219, end: 20191111
  14. PERJETA [Suspect]
     Active Substance: PERTUZUMAB
     Dosage: 840.000MG QD
     Route: 042
     Dates: start: 20170804, end: 20170804
  15. PERTUZUMAB [Suspect]
     Active Substance: PERTUZUMAB
     Indication: HER2 positive breast cancer
     Dosage: 840 MG,QD
     Route: 042
     Dates: start: 20170804, end: 20170804
  16. TAXOTERE [Suspect]
     Active Substance: DOCETAXEL
     Dosage: 120.000MG TIW
     Route: 042
     Dates: start: 20181219, end: 20190503
  17. TAXOTERE [Suspect]
     Active Substance: DOCETAXEL
     Dosage: 120.000MG TIW
     Route: 042
     Dates: start: 20181219, end: 20190503
  18. TAXOTERE [Suspect]
     Active Substance: DOCETAXEL
     Indication: HER2 positive breast cancer
     Dosage: 120 MG
     Route: 065
     Dates: start: 20181219, end: 20190503
  19. TAXOTERE [Suspect]
     Active Substance: DOCETAXEL
     Dosage: 75 MG/M2,Q3W (MOST DOSE PRIOR TO EVENT 19 DEC 2018)
     Route: 041
     Dates: start: 20170804, end: 201711
  20. TAXOTERE [Suspect]
     Active Substance: DOCETAXEL
     Dosage: 75.000MG/M2 TIW
     Route: 042
     Dates: start: 20170804, end: 201711
  21. TAXOTERE [Suspect]
     Active Substance: DOCETAXEL
     Dosage: 75.000MG/M2 TIW
     Route: 042
     Dates: start: 20170804, end: 201711
  22. TRASTUZUMAB [Suspect]
     Active Substance: TRASTUZUMAB
     Indication: HER2 positive breast cancer
     Dosage: 8 MG/KG,QD
     Route: 065
     Dates: start: 20170804, end: 20170804
  23. ADO-TRASTUZUMAB EMTANSINE [Suspect]
     Active Substance: ADO-TRASTUZUMAB EMTANSINE
     Indication: HER2 positive breast cancer
     Dosage: 200 MG
     Route: 042
     Dates: start: 20180830, end: 201811
  24. TYKERB [Suspect]
     Active Substance: LAPATINIB DITOSYLATE
     Indication: HER2 positive breast cancer
     Dosage: 1250 MG, QD
     Route: 048
     Dates: start: 20191125, end: 20191125
  25. VINORELBINE [Suspect]
     Active Substance: VINORELBINE TARTRATE
     Indication: HER2 positive breast cancer
     Dosage: 25 MG/M2,Q3W
     Route: 042
     Dates: start: 20200218
  26. XGEVA [Suspect]
     Active Substance: DENOSUMAB
     Indication: HER2 positive breast cancer
     Dosage: 120 MG,Q4W
     Route: 058
     Dates: start: 20181219
  27. GOSERELIN [Suspect]
     Active Substance: GOSERELIN
     Dosage: 3.600MG
     Route: 058
     Dates: start: 201610, end: 201706
  28. GOSERELIN [Suspect]
     Active Substance: GOSERELIN
     Indication: HER2 positive breast cancer
     Dosage: 6 MG/KG, Q3W
     Route: 065
     Dates: start: 20201208
  29. GENTAMICIN [Concomitant]
     Active Substance: GENTAMICIN
     Indication: Product used for unknown indication
     Dosage: 420 MG, Q3W
     Route: 042
     Dates: start: 20170824, end: 20180808
  30. MANNITOL [Concomitant]
     Active Substance: MANNITOL
     Indication: Product used for unknown indication
     Dosage: 6 MG/KG, Q3W
     Route: 042
     Dates: start: 20170824, end: 20180808
  31. METRONIDAZOLE [Concomitant]
     Active Substance: METRONIDAZOLE
     Indication: Product used for unknown indication
     Dosage: 250 MG
     Route: 042
     Dates: start: 20200421, end: 20200508
  32. MORPHINE [Concomitant]
     Active Substance: MORPHINE
     Indication: Product used for unknown indication
     Dosage: 200 MG 200 MG, Q3W
     Route: 042
     Dates: start: 20180830, end: 201811
  33. FAMOTIDINE [Concomitant]
     Active Substance: FAMOTIDINE
     Indication: Gastrointestinal bacterial infection
     Dosage: UNK
     Route: 065
  34. RINGERS SOLUTION [Concomitant]
     Active Substance: CALCIUM CHLORIDE\POTASSIUM CHLORIDE\SODIUM CHLORIDE
     Indication: Product used for unknown indication
     Dosage: 840 MG, QD
     Route: 042
     Dates: start: 20170804, end: 20170804
  35. VANCOMYCIN [Concomitant]
     Active Substance: VANCOMYCIN
     Indication: Product used for unknown indication
     Dosage: 3.6 MG, Q4W
     Route: 058
     Dates: start: 201610, end: 201706
  36. FENTANYL CITRATE [Concomitant]
     Active Substance: FENTANYL CITRATE
     Indication: Product used for unknown indication
     Dosage: UNK
     Route: 065
  37. XGEVA [Concomitant]
     Active Substance: DENOSUMAB
     Indication: Product used for unknown indication
     Dosage: 40 MG, QD
     Route: 042
     Dates: start: 20200512, end: 20200528

REACTIONS (5)
  - Metastases to spine [Recovered/Resolved]
  - Spinal compression fracture [Recovered/Resolved]
  - Paraparesis [Recovered/Resolved]
  - Gastrointestinal bacterial infection [Recovered/Resolved]
  - Pelvic pain [Not Recovered/Not Resolved]

NARRATIVE: CASE EVENT DATE: 20191201
